FAERS Safety Report 5115628-3 (Version None)
Quarter: 2006Q3

REPORT INFORMATION
  Report Type: 
  Country: None (occurrence: None)
  Receive Date: 20060927
  Receipt Date: 20060110
  Transmission Date: 20061208
  Serious: Yes (Disabling)
  Sender: FDA-Public Use
  Company Number: FRWYE287310JAN06

PATIENT
  Age: 41 Year
  Sex: Female

DRUGS (3)
  1. ENBREL [Suspect]
     Indication: POLYARTHRITIS
     Route: 058
     Dates: start: 20041029, end: 20050225
  2. OMEPRAZOLE [Concomitant]
     Dosage: UNKNOWN
  3. NEXEN [Concomitant]
     Dosage: UNKNOWN

REACTIONS (3)
  - DRUG INEFFECTIVE [None]
  - OSTEONECROSIS [None]
  - TOOTH INFECTION [None]
